FAERS Safety Report 4437808-2 (Version None)
Quarter: 2004Q3

REPORT INFORMATION
  Report Type: 
  Country: None (occurrence: None)
  Receive Date: 20040728
  Receipt Date: 20040308
  Transmission Date: 20050211
  Serious: No
  Sender: FDA-Public Use
  Company Number: USA040361210

PATIENT
  Age: 26 Year
  Sex: Female
  Weight: 97 kg

DRUGS (4)
  1. STRATTERA [Suspect]
     Dosage: 60 MG DAY
     Dates: start: 20010101
  2. LAMICTAL [Concomitant]
  3. LEXAPRO [Concomitant]
  4. SEROQUEL [Concomitant]

REACTIONS (2)
  - AMENORRHOEA [None]
  - FEELING ABNORMAL [None]
